FAERS Safety Report 14229771 (Version 1)
Quarter: 2017Q4

REPORT INFORMATION
  Report Type: Spontaneous
  Country: US (occurrence: None)
  Receive Date: 20171127
  Receipt Date: 20171127
  Transmission Date: 20180321
  Serious: No
  Sender: FDA-Public Use
  Company Number: None

PATIENT
  Sex: Male

DRUGS (13)
  1. HYDROCORTISONE. [Concomitant]
     Active Substance: HYDROCORTISONE
  2. KCL [Concomitant]
     Active Substance: POTASSIUM CHLORIDE
  3. ESOMEPRAZOLE [Concomitant]
     Active Substance: ESOMEPRAZOLE
  4. OMNITROPE [Suspect]
     Active Substance: SOMATROPIN
     Indication: DWARFISM
     Route: 058
     Dates: start: 20170131
  5. TRIAMT/HCTZ [Concomitant]
     Active Substance: HYDROCHLOROTHIAZIDE\TRIAMTERENE
  6. FUROSEMIDE. [Concomitant]
     Active Substance: FUROSEMIDE
  7. MUPIROCIN. [Concomitant]
     Active Substance: MUPIROCIN
  8. AMOXICILLIN. [Concomitant]
     Active Substance: AMOXICILLIN
  9. CARVEDILOL. [Concomitant]
     Active Substance: CARVEDILOL
  10. LEVOTHYROXINE. [Suspect]
     Active Substance: LEVOTHYROXINE
  11. M-END DMX [Concomitant]
     Active Substance: DEXBROMPHENIRAMINE MALEATE\DEXTROMETHORPHAN HYDROBROMIDE\PSEUDOEPHEDRINE HYDROCHLORIDE
  12. OSELTAMIVIR [Concomitant]
     Active Substance: OSELTAMIVIR
  13. LISINOPRIL. [Concomitant]
     Active Substance: LISINOPRIL

REACTIONS (1)
  - Hospitalisation [None]

NARRATIVE: CASE EVENT DATE: 2017
